FAERS Safety Report 12649619 (Version 1)
Quarter: 2016Q3

REPORT INFORMATION
  Report Type: Spontaneous
  Country: GB (occurrence: GB)
  Receive Date: 20160812
  Receipt Date: 20160812
  Transmission Date: 20161109
  Serious: Yes (Other)
  Sender: FDA-Public Use
  Company Number: GB-FRESENIUS KABI-FK201605365

PATIENT
  Sex: Female

DRUGS (2)
  1. PAMIDRONATE [Suspect]
     Active Substance: PAMIDRONATE DISODIUM
     Indication: OSTEOGENESIS IMPERFECTA
     Route: 042
  2. PAMIDRONATE [Suspect]
     Active Substance: PAMIDRONATE DISODIUM
     Route: 042

REACTIONS (6)
  - Impaired healing [Recovered/Resolved with Sequelae]
  - Product use issue [Recovered/Resolved with Sequelae]
  - Atypical femur fracture [Recovered/Resolved with Sequelae]
  - Vitamin D deficiency [Unknown]
  - Drug administered to patient of inappropriate age [Recovered/Resolved with Sequelae]
  - Bone density increased [Recovered/Resolved with Sequelae]
